FAERS Safety Report 15401622 (Version 4)
Quarter: 2019Q1

REPORT INFORMATION
  Report Type: Spontaneous
  Country: US (occurrence: US)
  Receive Date: 20180919
  Receipt Date: 20190221
  Transmission Date: 20190417
  Serious: No
  Sender: FDA-Public Use
  Company Number: US-PFIZER INC-2018372726

PATIENT
  Age: 91 Year
  Sex: Male

DRUGS (47)
  1. CIPROFLOXACIN. [Suspect]
     Active Substance: CIPROFLOXACIN
     Dosage: UNK
  2. DONEPEZIL HCL [Suspect]
     Active Substance: DONEPEZIL HYDROCHLORIDE
     Dosage: UNK
  3. DOXEPIN HCL [Suspect]
     Active Substance: DOXEPIN HYDROCHLORIDE
     Dosage: UNK
  4. HYDROCODONE/ACETAMINOPHEN [Suspect]
     Active Substance: ACETAMINOPHEN\HYDROCODONE
     Dosage: UNK
  5. ETHAMBUTOL HCL [Suspect]
     Active Substance: ETHAMBUTOL HYDROCHLORIDE
     Dosage: UNK
  6. MIRTAZAPINE. [Suspect]
     Active Substance: MIRTAZAPINE
     Dosage: UNK
  7. TELMISARTAN. [Suspect]
     Active Substance: TELMISARTAN
     Dosage: UNK
  8. CODEINE SULFATE. [Suspect]
     Active Substance: CODEINE SULFATE
     Dosage: UNK
  9. KETOROLAC [Suspect]
     Active Substance: KETOROLAC\KETOROLAC TROMETHAMINE
     Dosage: UNK
  10. SERTRALINE HCL [Suspect]
     Active Substance: SERTRALINE HYDROCHLORIDE
     Dosage: UNK
  11. AMITRIPTYLINE [Suspect]
     Active Substance: AMITRIPTYLINE
     Dosage: UNK
  12. BUPROPION. [Suspect]
     Active Substance: BUPROPION
     Dosage: UNK
  13. DULOXETINE. [Suspect]
     Active Substance: DULOXETINE
     Dosage: UNK
  14. RISEDRONATE [Suspect]
     Active Substance: RISEDRONATE SODIUM
     Dosage: UNK
  15. TROMETHAMINE. [Suspect]
     Active Substance: TROMETHAMINE
     Dosage: UNK
  16. ALCOHOL. [Suspect]
     Active Substance: ALCOHOL
     Dosage: UNK
  17. HYDRALAZINE HCL [Suspect]
     Active Substance: HYDRALAZINE HYDROCHLORIDE
     Dosage: UNK
  18. TETANUS TOXOID ADSORBED (VACCINE) [Suspect]
     Active Substance: CLOSTRIDIUM TETANI TOXOID ANTIGEN (FORMALDEHYDE INACTIVATED)
     Dosage: UNK
  19. PIPERACILLIN. [Suspect]
     Active Substance: PIPERACILLIN SODIUM
     Dosage: UNK
  20. BUPROPION HCL [Suspect]
     Active Substance: BUPROPION HYDROCHLORIDE
     Dosage: UNK
  21. TRAZODONE HYDROCHLORIDE. [Suspect]
     Active Substance: TRAZODONE HYDROCHLORIDE
     Dosage: UNK
  22. TRIAMTERENE. [Suspect]
     Active Substance: TRIAMTERENE
     Dosage: UNK
  23. CLARITHROMYCIN. [Suspect]
     Active Substance: CLARITHROMYCIN
     Dosage: UNK
  24. LEVOFLOXACIN. [Suspect]
     Active Substance: LEVOFLOXACIN
     Dosage: UNK
  25. KETOROLAC TROMETHAMINE. [Suspect]
     Active Substance: KETOROLAC TROMETHAMINE
     Dosage: UNK
  26. PENTAZOCINE LACTATE [Suspect]
     Active Substance: PENTAZOCINE LACTATE
     Dosage: UNK
  27. HYDROCODONE [Suspect]
     Active Substance: HYDROCODONE
     Dosage: UNK
  28. PENTAZOCINE [Suspect]
     Active Substance: PENTAZOCINE
     Dosage: UNK
  29. LISINOPRIL. [Suspect]
     Active Substance: LISINOPRIL
     Dosage: UNK
  30. PENTAZOCINE/NALOXONE [Suspect]
     Active Substance: NALOXONE\PENTAZOCINE
     Dosage: UNK
  31. RISEDRONATE SODIUM. [Suspect]
     Active Substance: RISEDRONATE SODIUM
     Dosage: UNK
  32. SIMVASTATIN. [Suspect]
     Active Substance: SIMVASTATIN
     Dosage: UNK
  33. DESIPRAMINE [Suspect]
     Active Substance: DESIPRAMINE
     Dosage: UNK
  34. HYDRALAZINE [Suspect]
     Active Substance: HYDRALAZINE HYDROCHLORIDE
     Dosage: UNK
  35. ACETAMINOPHEN. [Suspect]
     Active Substance: ACETAMINOPHEN
     Dosage: UNK
  36. DILTIAZEM HCL [Suspect]
     Active Substance: DILTIAZEM HYDROCHLORIDE
     Dosage: UNK
  37. EPINEPHRINE. [Suspect]
     Active Substance: EPINEPHRINE
     Dosage: UNK
  38. CODEINE [Suspect]
     Active Substance: CODEINE
     Dosage: UNK
  39. ETHYL ALCOHOL [Suspect]
     Active Substance: ALCOHOL
     Dosage: UNK
  40. ETHAMBUTOL [Suspect]
     Active Substance: ETHAMBUTOL HYDROCHLORIDE
     Dosage: UNK
  41. FLUOXETINE HCL [Suspect]
     Active Substance: FLUOXETINE HYDROCHLORIDE
     Dosage: UNK
  42. AMLODIPINE BESILATE [Suspect]
     Active Substance: AMLODIPINE BESYLATE
     Dosage: UNK
  43. MEPERIDINE HCL [Suspect]
     Active Substance: MEPERIDINE HYDROCHLORIDE
     Dosage: UNK
  44. CETIRIZINE HCL [Suspect]
     Active Substance: CETIRIZINE HYDROCHLORIDE
     Dosage: UNK
  45. CLONIDINE. [Suspect]
     Active Substance: CLONIDINE
     Dosage: UNK
  46. TRAZODONE [Suspect]
     Active Substance: TRAZODONE HYDROCHLORIDE
     Dosage: UNK
  47. METHYLDOPA. [Suspect]
     Active Substance: METHYLDOPA
     Dosage: UNK

REACTIONS (1)
  - Drug hypersensitivity [Unknown]
